FAERS Safety Report 4328471-X (Version None)
Quarter: 2004Q1

REPORT INFORMATION
  Report Type: 
  Country: None (occurrence: None)
  Receive Date: 20040319
  Receipt Date: 20031226
  Transmission Date: 20041129
  Serious: No
  Sender: FDA-Public Use
  Company Number: US-JNJFOC-20031205581

PATIENT
  Age: 47 Year
  Sex: Female

DRUGS (1)
  1. ORTHO EVRA [Suspect]
     Indication: MENOPAUSAL SYMPTOMS
     Dosage: 1 DOSE(S), 1 IN 1 WEEK, TRANSDERMAL
     Route: 062
     Dates: start: 20030101, end: 20031201

REACTIONS (6)
  - ARTHRALGIA [None]
  - BACK PAIN [None]
  - DYSMENORRHOEA [None]
  - METRORRHAGIA [None]
  - PAIN IN EXTREMITY [None]
  - PARAESTHESIA [None]
